FAERS Safety Report 18746200 (Version 1)
Quarter: 2021Q1

REPORT INFORMATION
  Report Type: Spontaneous
  Country: IL (occurrence: IL)
  Receive Date: 20210115
  Receipt Date: 20210115
  Transmission Date: 20210419
  Serious: Yes (Other)
  Sender: FDA-Public Use
  Company Number: IL-TEVA-2021-IL-1867862

PATIENT
  Age: 28 Year
  Sex: Female

DRUGS (1)
  1. BEDODEKA [Suspect]
     Active Substance: CYANOCOBALAMIN
     Route: 065

REACTIONS (2)
  - Pain [Unknown]
  - Pain in extremity [Unknown]
